FAERS Safety Report 18053040 (Version 1)
Quarter: 2020Q3

REPORT INFORMATION
  Report Type: Other
  Country: US (occurrence: US)
  Receive Date: 20200722
  Receipt Date: 20200722
  Transmission Date: 20201103
  Serious: Yes (Other)
  Sender: FDA-Public Use
  Company Number: US-ROCHE-2645231

PATIENT
  Age: 53 Year
  Sex: Female

DRUGS (6)
  1. CARBATROL [Concomitant]
     Active Substance: CARBAMAZEPINE
  2. NEURONTIN [Concomitant]
     Active Substance: GABAPENTIN
  3. LISINOPRIL. [Concomitant]
     Active Substance: LISINOPRIL
  4. MODAFINIL. [Concomitant]
     Active Substance: MODAFINIL
  5. OCREVUS [Suspect]
     Active Substance: OCRELIZUMAB
     Indication: MULTIPLE SCLEROSIS
     Route: 042
  6. LEXAPRO [Concomitant]
     Active Substance: ESCITALOPRAM OXALATE

REACTIONS (2)
  - Pain [Recovered/Resolved]
  - Cholecystitis infective [Recovered/Resolved]

NARRATIVE: CASE EVENT DATE: 202002
